FAERS Safety Report 24610932 (Version 2)
Quarter: 2025Q3

REPORT INFORMATION
  Report Type: Spontaneous
  Country: EU (occurrence: EU)
  Receive Date: 20241112
  Receipt Date: 20250809
  Transmission Date: 20251020
  Serious: Yes (Other)
  Sender: ALEXION PHARMACEUTICALS
  Company Number: EU-AstraZeneca-CH-00741226A

PATIENT
  Age: 57 Year
  Sex: Female
  Weight: 64 kg

DRUGS (1)
  1. TAGRISSO [Suspect]
     Active Substance: OSIMERTINIB
     Indication: Non-small cell lung cancer metastatic
     Dates: start: 20240605, end: 20241101

REACTIONS (2)
  - Pulmonary alveolar haemorrhage [Recovering/Resolving]
  - Tumour haemorrhage [Unknown]

NARRATIVE: CASE EVENT DATE: 20241001
